FAERS Safety Report 23606667 (Version 1)
Quarter: 2024Q1

REPORT INFORMATION
  Report Type: Spontaneous
  Country: US (occurrence: US)
  Receive Date: 20240307
  Receipt Date: 20240307
  Transmission Date: 20240409
  Serious: Yes (Other)
  Sender: FDA-Public Use
  Company Number: US-ORGANON-O2403USA000474

PATIENT
  Age: 17 Year
  Sex: Female
  Weight: 87.982 kg

DRUGS (1)
  1. NEXPLANON [Suspect]
     Active Substance: ETONOGESTREL
     Dosage: 1 IMPLANT IN LEFT ARM
     Route: 059
     Dates: start: 20231023, end: 20240304

REACTIONS (3)
  - Pregnancy with implant contraceptive [Not Recovered/Not Resolved]
  - Unintended pregnancy [Not Recovered/Not Resolved]
  - Breast discharge [Unknown]

NARRATIVE: CASE EVENT DATE: 20231009
